FAERS Safety Report 26216238 (Version 1)
Quarter: 2025Q4

REPORT INFORMATION
  Report Type: Spontaneous
  Country: EG (occurrence: EG)
  Receive Date: 20251231
  Receipt Date: 20251231
  Transmission Date: 20260118
  Serious: Yes (Other)
  Sender: HIKMA
  Company Number: EG-HIKMA PHARMACEUTICALS USA INC.-EG-H14001-25-13899

PATIENT
  Age: 36 Year
  Sex: Male
  Weight: 100 kg

DRUGS (6)
  1. ETOPOSIDE [Suspect]
     Active Substance: ETOPOSIDE
     Indication: Testicular seminoma (pure)
     Dosage: 200 MILLIGRAM, 3W (CYCLE 1, DAY 1)
     Dates: start: 20250920
  2. ETOPOSIDE [Suspect]
     Active Substance: ETOPOSIDE
     Dosage: 200 MILLIGRAM, 3W (CYCLE 1, DAY 5)
     Dates: start: 20250924
  3. CISPLATIN [Suspect]
     Active Substance: CISPLATIN
     Indication: Testicular seminoma (pure)
     Dosage: 40 MILLIGRAM, 3W (CYCLE 1, DAY 1)
     Dates: start: 20250920
  4. CISPLATIN [Suspect]
     Active Substance: CISPLATIN
     Dosage: 40 MILLIGRAM, 3W (CYCLE 1, DAY 5)
     Dates: start: 20250924
  5. BLEOMYCIN [Suspect]
     Active Substance: BLEOMYCIN SULFATE
     Indication: Testicular seminoma (pure)
     Dosage: 30 INTERNATIONAL UNIT, 3W (CYCLE 1, DAY 1)
     Dates: start: 20250920
  6. BLEOMYCIN [Suspect]
     Active Substance: BLEOMYCIN SULFATE
     Dosage: 30 INTERNATIONAL UNIT, 3W (CYCLE 1, DAY 8)
     Dates: start: 20250927

REACTIONS (4)
  - Deep vein thrombosis [Recovered/Resolved]
  - Oedema peripheral [Recovered/Resolved]
  - Walking disability [Recovered/Resolved]
  - Pyrexia [Recovered/Resolved]

NARRATIVE: CASE EVENT DATE: 20251004
